FAERS Safety Report 8649313 (Version 2)
Quarter: 2014Q1

REPORT INFORMATION
  Report Type: Spontaneous
  Country: US (occurrence: None)
  Receive Date: 20120323
  Receipt Date: 20130305
  Transmission Date: 20141002
  Serious: Yes (Other)
  Sender: FDA-Public Use
  Company Number: 163-21880-11100264

PATIENT
  Age: 46 Year
  Sex: Male
  Weight: 107.5 kg

DRUGS (7)
  1. REVLIMID [Suspect]
     Indication: LYMPHOMA
     Route: 048
     Dates: start: 20110923, end: 20110928
  2. DIPHENHYDRAMINE HYDROCHLORIDE [Concomitant]
  3. APAP/HYDROCODONE (PROCET /USA/) [Concomitant]
  4. ACETAMINOPHEN (PARACETAMOL) (TABLETS) [Concomitant]
  5. MERPERIDINE [Concomitant]
  6. RITUXIMAB [Concomitant]
  7. SODIUM CHLORIDE [Concomitant]

REACTIONS (1)
  - Neutropenia [None]
